FAERS Safety Report 5367927-8 (Version None)
Quarter: 2007Q2

REPORT INFORMATION
  Report Type: 
  Country: None (occurrence: None)
  Receive Date: 20070622
  Receipt Date: 20070608
  Transmission Date: 20071010
  Serious: Yes (Other)
  Sender: FDA-Public Use
  Company Number: CA-AMGEN-KDL228433

PATIENT
  Sex: Male

DRUGS (5)
  1. ENBREL [Suspect]
     Indication: RHEUMATOID ARTHRITIS
     Route: 058
     Dates: start: 20060202
  2. SYNTHROID [Concomitant]
     Route: 048
     Dates: start: 20060601
  3. NEXIUM [Concomitant]
     Route: 048
     Dates: start: 20010101
  4. METHOTREXATE [Concomitant]
     Route: 048
     Dates: start: 20010201
  5. PREDNISONE TAB [Concomitant]
     Route: 048
     Dates: start: 20060201

REACTIONS (1)
  - RETINAL DETACHMENT [None]
